FAERS Safety Report 14418263 (Version 1)
Quarter: 2018Q1

REPORT INFORMATION
  Report Type: Spontaneous
  Country: US (occurrence: US)
  Receive Date: 20180122
  Receipt Date: 20180122
  Transmission Date: 20180509
  Serious: Yes (Hospitalization, Other)
  Sender: FDA-Public Use
  Company Number: US-IMPAX LABORATORIES, INC-2018-IPXL-00090

PATIENT
  Age: 47 Year
  Sex: Female

DRUGS (2)
  1. BACLOFEN. [Suspect]
     Active Substance: BACLOFEN
     Dosage: HALF HER HOME DOSE, UNK
     Route: 065
  2. BACLOFEN. [Suspect]
     Active Substance: BACLOFEN
     Indication: MUSCLE SPASMS
     Dosage: 10 MG, 3 /DAY
     Route: 065

REACTIONS (5)
  - Unresponsive to stimuli [Recovered/Resolved]
  - Agitation [Recovered/Resolved]
  - Overdose [Recovered/Resolved]
  - Drug withdrawal syndrome [Recovered/Resolved]
  - Delirium [Recovered/Resolved]
